FAERS Safety Report 7321903-4 (Version None)
Quarter: 2011Q1

REPORT INFORMATION
  Report Type: 
  Country: None (occurrence: None)
  Receive Date: 20110228
  Receipt Date: 20110224
  Transmission Date: 20110831
  Serious: Yes (Other)
  Sender: FDA-Public Use
  Company Number: BR-ABBOTT-07P-020-0423117-00

PATIENT
  Sex: Male
  Weight: 86 kg

DRUGS (24)
  1. METHOTREXATE [Concomitant]
     Indication: PRODUCT USED FOR UNKNOWN INDICATION
     Route: 048
     Dates: start: 20060101
  2. ATENOLOL [Concomitant]
     Indication: PRODUCT USED FOR UNKNOWN INDICATION
     Route: 048
     Dates: start: 19890101
  3. ALIVIUM [Concomitant]
     Indication: OSTEOARTHRITIS
  4. FOLIC ACID [Concomitant]
     Indication: OSTEOARTHRITIS
  5. SULFASALAZINE [Concomitant]
     Indication: OSTEOARTHRITIS
  6. ASTRO [Concomitant]
     Indication: RHEUMATOID ARTHRITIS
     Route: 048
  7. SULFASALAZINE [Concomitant]
     Indication: RHEUMATOID ARTHRITIS
     Route: 048
     Dates: start: 19970101
  8. SULFASALAZINE [Concomitant]
     Indication: REITER'S SYNDROME
  9. CAPTOPRIL [Concomitant]
     Indication: CEREBROVASCULAR ACCIDENT
     Route: 050
     Dates: start: 20060101
  10. CALCIUM [Concomitant]
     Indication: PRODUCT USED FOR UNKNOWN INDICATION
  11. BETAMETHASONE [Concomitant]
     Indication: PRODUCT USED FOR UNKNOWN INDICATION
  12. LEFLUNOMIDE [Concomitant]
     Indication: PRODUCT USED FOR UNKNOWN INDICATION
  13. ASTRO [Concomitant]
     Indication: REITER'S SYNDROME
  14. FOLIC ACID [Concomitant]
     Indication: RHEUMATOID ARTHRITIS
     Route: 048
     Dates: start: 19970101
  15. HUMIRA [Suspect]
     Indication: RHEUMATOID ARTHRITIS
     Route: 058
     Dates: start: 20060101
  16. OMEPRAZOLE [Concomitant]
     Indication: PRODUCT USED FOR UNKNOWN INDICATION
     Route: 048
     Dates: start: 20060101
  17. ALIVIUM [Concomitant]
     Indication: REITER'S SYNDROME
  18. CAPTOPRIL [Concomitant]
     Indication: HYPERTENSION
  19. TANZOFOL [Concomitant]
     Indication: PRODUCT USED FOR UNKNOWN INDICATION
  20. FOLIC ACID [Concomitant]
     Indication: REITER'S SYNDROME
  21. ISONIAZID [Concomitant]
     Indication: ANTIBIOTIC PROPHYLAXIS
     Route: 048
  22. SANDOX [Concomitant]
     Indication: NERVOUS SYSTEM DISORDER
     Route: 048
     Dates: start: 20060101
  23. ALIVIUM [Concomitant]
     Indication: RHEUMATOID ARTHRITIS
     Route: 048
     Dates: start: 19970101
  24. ASPIRIN [Concomitant]
     Indication: ANTICOAGULANT THERAPY
     Route: 048
     Dates: start: 20060101

REACTIONS (6)
  - DRUG INEFFECTIVE [None]
  - ARTHRALGIA [None]
  - CEREBROVASCULAR ACCIDENT [None]
  - MEMORY IMPAIRMENT [None]
  - PAIN IN EXTREMITY [None]
  - MONOPLEGIA [None]
